FAERS Safety Report 6357551-2 (Version None)
Quarter: 2009Q3

REPORT INFORMATION
  Report Type: 
  Country: None (occurrence: None)
  Receive Date: 20090916
  Receipt Date: 20090904
  Transmission Date: 20100115
  Serious: Yes (Other)
  Sender: FDA-Public Use
  Company Number: PHHY2009JP38019

PATIENT
  Sex: Female

DRUGS (7)
  1. AMN107 AMN+CAP [Suspect]
     Indication: CHRONIC MYELOID LEUKAEMIA
     Dosage: 800 MG/DAY
     Route: 048
     Dates: start: 20090414, end: 20090505
  2. AMN107 AMN+CAP [Suspect]
     Dosage: 800 MG/DAY
     Route: 048
     Dates: start: 20090526
  3. LEVOFLOXACIN [Concomitant]
     Dosage: UNK
     Route: 031
     Dates: start: 20090505, end: 20090602
  4. FLUMETHOLON [Concomitant]
     Dosage: UNK
     Route: 031
     Dates: start: 20090505, end: 20090602
  5. KINDAVATE [Concomitant]
     Dosage: UNK
     Route: 061
     Dates: start: 20090623
  6. RINDERON -V [Concomitant]
     Dosage: UNK
     Route: 061
     Dates: start: 20090623
  7. HYDREA [Concomitant]
     Dosage: UNK
     Route: 048
     Dates: start: 20070316, end: 20070327

REACTIONS (5)
  - BASOPHIL PERCENTAGE INCREASED [None]
  - BLEPHARITIS [None]
  - BLOOD BILIRUBIN INCREASED [None]
  - RASH GENERALISED [None]
  - WHITE BLOOD CELL COUNT DECREASED [None]
